FAERS Safety Report 8992028 (Version 1)
Quarter: 2012Q4

REPORT INFORMATION
  Report Type: 
  Country: MX (occurrence: MX)
  Receive Date: 20121231
  Receipt Date: 20121231
  Transmission Date: 20130627
  Serious: Yes (Other)
  Sender: FDA-Public Use
  Company Number: PHHY2012MX120974

PATIENT
  Sex: Female

DRUGS (4)
  1. TEGRETOL [Suspect]
     Indication: EPILEPSY
     Dosage: 2 DF, daily
     Route: 048
     Dates: start: 201203
  2. ANTIBIOTICS [Suspect]
  3. DIOVAN [Concomitant]
     Dosage: 1 DF, daily
  4. ENALAPRIL [Concomitant]
     Dosage: 2 DF, daily

REACTIONS (2)
  - Toxicity to various agents [Unknown]
  - Blood urine present [Not Recovered/Not Resolved]
